FAERS Safety Report 18151380 (Version 2)
Quarter: 2020Q3

REPORT INFORMATION
  Report Type: Spontaneous
  Country: AR (occurrence: AR)
  Receive Date: 20200814
  Receipt Date: 20200824
  Transmission Date: 20201103
  Serious: No
  Sender: FDA-Public Use
  Company Number: AR-AMGEN-ARGSP2020131386

PATIENT
  Age: 65 Year
  Sex: Male

DRUGS (4)
  1. MEPREDNISONA [Concomitant]
     Active Substance: MEPREDNISONE
     Dosage: UNK
     Route: 065
  2. NAPROXENO / PARACETAMOL [Concomitant]
     Indication: PAIN
     Dosage: UNK
     Route: 065
  3. ENALAPRIL [Concomitant]
     Active Substance: ENALAPRIL
     Indication: BLOOD PRESSURE MEASUREMENT
     Dosage: UNK
     Route: 065
  4. ENBREL [Suspect]
     Active Substance: ETANERCEPT
     Indication: RHEUMATOID ARTHRITIS
     Dosage: 50 MG, WEEKLY
     Route: 065
     Dates: start: 20151110

REACTIONS (1)
  - No adverse event [Unknown]
